FAERS Safety Report 8256496-0 (Version None)
Quarter: 2012Q2

REPORT INFORMATION
  Report Type: 
  Country: None (occurrence: None)
  Receive Date: 20120403
  Receipt Date: 20120327
  Transmission Date: 20120825
  Serious: Yes (Other)
  Sender: FDA-Public Use
  Company Number: PHHY2012US026805

PATIENT
  Sex: Female

DRUGS (1)
  1. BUFFERIN [Suspect]
     Route: 048
     Dates: start: 20120301

REACTIONS (3)
  - BLADDER DISORDER [None]
  - RENAL DISORDER [None]
  - BLOOD URINE PRESENT [None]
